FAERS Safety Report 5761973-8 (Version None)
Quarter: 2008Q2

REPORT INFORMATION
  Report Type: 
  Country: None (occurrence: None)
  Receive Date: 20080603
  Receipt Date: 20080519
  Transmission Date: 20081010
  Serious: Yes (Other)
  Sender: FDA-Public Use
  Company Number: 2008S1008515

PATIENT
  Age: 2 Year
  Sex: Male

DRUGS (5)
  1. PIROXICAM [Suspect]
     Indication: ARTHRITIS
     Dosage: ORAL
     Route: 048
     Dates: start: 20040101
  2. IBUPROFEN [Suspect]
     Indication: ARTHRITIS
     Dosage: 200 MG; ORAL; TWICE A DAY
     Route: 048
     Dates: start: 20040101
  3. METHOTREXATE [Suspect]
     Indication: ARTHRITIS
     Dosage: 7.5 MG ; SUBCUTANEOUS; WEEKLY
     Route: 058
     Dates: start: 20030804, end: 20040129
  4. IRON (IRON) [Concomitant]
  5. TRIAMCINOLONE [Concomitant]

REACTIONS (3)
  - ALANINE AMINOTRANSFERASE INCREASED [None]
  - MUSCULOSKELETAL STIFFNESS [None]
  - SPONDYLITIS [None]
